FAERS Safety Report 8506241-6 (Version None)
Quarter: 2012Q3

REPORT INFORMATION
  Report Type: 
  Country: None (occurrence: None)
  Receive Date: 20120712
  Receipt Date: 20120710
  Transmission Date: 20120928
  Serious: No
  Sender: FDA-Public Use
  Company Number: US-BAYER-2012-067803

PATIENT
  Age: 73 Year
  Sex: Male

DRUGS (2)
  1. LEVITRA [Suspect]
     Dosage: DOSAGE: 20MG
     Route: 048
  2. LEVITRA [Suspect]
     Dosage: DOSAGE: 10MG
     Route: 048

REACTIONS (1)
  - UNEVALUABLE EVENT [None]
